FAERS Safety Report 17571250 (Version 1)
Quarter: 2020Q1

REPORT INFORMATION
  Report Type: Spontaneous
  Country: US (occurrence: US)
  Receive Date: 20200323
  Receipt Date: 20200323
  Transmission Date: 20200409
  Serious: No
  Sender: FDA-Public Use
  Company Number: US-JNJFOC-20200310272

PATIENT
  Age: 49 Year
  Sex: Female
  Weight: 59.02 kg

DRUGS (2)
  1. EFFEXOR [Concomitant]
     Active Substance: VENLAFAXINE HYDROCHLORIDE
     Route: 065
  2. SPRAVATO [Suspect]
     Active Substance: ESKETAMINE
     Indication: PRODUCT USED FOR UNKNOWN INDICATION
     Dates: start: 201912

REACTIONS (6)
  - Frustration tolerance decreased [Unknown]
  - Panic attack [Recovered/Resolved]
  - Language disorder [Recovered/Resolved]
  - Therapeutic product effect decreased [Unknown]
  - Product dose omission [Unknown]
  - Decreased eye contact [Recovered/Resolved]

NARRATIVE: CASE EVENT DATE: 202002
